FAERS Safety Report 11695724 (Version 1)
Quarter: 2015Q4

REPORT INFORMATION
  Report Type: Spontaneous
  Country: US (occurrence: None)
  Receive Date: 20151103
  Receipt Date: 20151103
  Transmission Date: 20160304
  Serious: Yes (Other)
  Sender: FDA-Public Use
  Company Number: None

PATIENT
  Age: 27 Year
  Sex: Male
  Weight: 76.66 kg

DRUGS (1)
  1. BUNAVAIL [Suspect]
     Active Substance: BUPRENORPHINE HYDROCHLORIDE\NALOXONE HYDROCHLORIDE DIHYDRATE
     Indication: DRUG DEPENDENCE
     Route: 002
     Dates: start: 20150930

REACTIONS (6)
  - Withdrawal syndrome [None]
  - Disease recurrence [None]
  - Abdominal pain upper [None]
  - Headache [None]
  - Tremor [None]
  - Night sweats [None]

NARRATIVE: CASE EVENT DATE: 20151028
